FAERS Safety Report 26117933 (Version 1)
Quarter: 2025Q4

REPORT INFORMATION
  Report Type: Spontaneous
  Country: EU (occurrence: EU)
  Receive Date: 20251203
  Receipt Date: 20251203
  Transmission Date: 20260117
  Serious: Yes (Other)
  Sender: MERCK SHARP & DOHME LLC
  Company Number: None

PATIENT
  Age: 72 Year
  Sex: Male
  Weight: 57 kg

DRUGS (24)
  1. KEYTRUDA [Suspect]
     Active Substance: PEMBROLIZUMAB
     Indication: Lung adenocarcinoma
     Dosage: STRENGTH 50MG
     Route: 042
     Dates: start: 20251021
  2. ROSUVASTATIN [Concomitant]
     Active Substance: ROSUVASTATIN
     Indication: Dyslipidaemia
     Route: 048
  3. ENOXAPARIN SODIUM [Concomitant]
     Active Substance: ENOXAPARIN SODIUM
     Indication: Thrombosis prophylaxis
     Route: 058
  4. CARBOPLATIN [Concomitant]
     Active Substance: CARBOPLATIN
     Indication: Lung adenocarcinoma
     Dosage: AUC4
     Route: 042
     Dates: start: 20251021
  5. PANTOPRAZOLE [Concomitant]
     Active Substance: PANTOPRAZOLE
     Indication: Gastrooesophageal reflux prophylaxis
     Route: 048
  6. POLYETHYLENE GLYCOL 4000 [Concomitant]
     Active Substance: POLYETHYLENE GLYCOL 4000
     Indication: Constipation
     Route: 048
  7. PRILOCAINE [Concomitant]
     Active Substance: PRILOCAINE
     Indication: Injection site pain
     Route: 062
  8. PREDNISOLONE [Suspect]
     Active Substance: PREDNISOLONE
     Indication: Prophylaxis of nausea and vomiting
     Dosage: STRENGTH 20MG
     Route: 048
     Dates: start: 20251015
  9. ACETAMINOPHEN [Concomitant]
     Active Substance: ACETAMINOPHEN
     Indication: Pyrexia
     Route: 048
  10. FUNGIZONE 10 PER CENT, oral suspension [Concomitant]
     Indication: Stomatitis
     Dosage: STRENGTH : 10%
     Route: 048
     Dates: start: 20251027, end: 20251107
  11. ALPRAZOLAM [Concomitant]
     Active Substance: ALPRAZOLAM
     Indication: Anxiety
     Route: 048
  12. PEMETREXED [Concomitant]
     Active Substance: PEMETREXED
     Indication: Lung adenocarcinoma
     Dosage: AUC4
     Route: 042
     Dates: start: 20251021
  13. ALBUTEROL [Concomitant]
     Active Substance: ALBUTEROL
     Indication: Muscle spasticity
  14. MIRTAZAPINE [Concomitant]
     Active Substance: MIRTAZAPINE
     Indication: Product used for unknown indication
     Route: 048
  15. SODIUM BICARBONATE [Concomitant]
     Active Substance: SODIUM BICARBONATE
     Indication: Dry mouth
     Route: 002
  16. PELMEG 6 mg, solution for injection in pre-filled syringe [Concomitant]
     Indication: Chemotherapy toxicity attenuation
     Dosage: STRENGTH 6MG
     Route: 058
     Dates: start: 20251024
  17. LEVOTHYROXINE SODIUM [Concomitant]
     Active Substance: LEVOTHYROXINE SODIUM
     Indication: Thyroidectomy
     Route: 048
  18. MAGNESIUM (PIDOLATE) [Concomitant]
     Indication: Mineral supplementation
     Route: 048
  19. PHOCYTAN, solution to dilute for infusion [Concomitant]
     Indication: Mineral supplementation
     Route: 042
  20. LIDOCAINE [Concomitant]
     Active Substance: LIDOCAINE
     Indication: Injection site pain
     Route: 062
  21. CYANOCOBALAMIN [Concomitant]
     Active Substance: CYANOCOBALAMIN
     Indication: Vitamin supplementation
     Route: 048
  22. FOLIC ACID [Concomitant]
     Active Substance: FOLIC ACID
     Indication: Vitamin supplementation
     Route: 048
  23. VITAMIN D3 [Concomitant]
     Active Substance: CHOLECALCIFEROL
     Indication: Vitamin supplementation
     Route: 048
     Dates: start: 20251013, end: 20251111
  24. ANDROTARDYL 250 mg/1 ml, solution for intramuscular injection [Concomitant]
     Indication: Hypogonadism male
     Dosage: STRENGTH 250 MG/1 ML
     Route: 030

REACTIONS (1)
  - Diabetes mellitus [Not Recovered/Not Resolved]

NARRATIVE: CASE EVENT DATE: 20251104
